FAERS Safety Report 13896301 (Version 2)
Quarter: 2017Q4

REPORT INFORMATION
  Report Type: Spontaneous
  Country: GB (occurrence: GB)
  Receive Date: 20170823
  Receipt Date: 20171023
  Transmission Date: 20180320
  Serious: Yes (Death, Hospitalization, Other)
  Sender: FDA-Public Use
  Company Number: GB-TEVA-797554ACC

PATIENT
  Age: 81 Year
  Sex: Female
  Weight: 71.24 kg

DRUGS (12)
  1. LEVOTHYROXINE SODIUM. [Concomitant]
     Active Substance: LEVOTHYROXINE SODIUM
     Indication: HYPOTHYROIDISM
     Dosage: 50 MICROGRAM DAILY;
     Dates: start: 20170518
  2. LOSARTAN. [Concomitant]
     Active Substance: LOSARTAN
     Indication: HYPERTENSION
     Dosage: 100 MILLIGRAM DAILY;
     Dates: start: 20170419
  3. ACIDEX [Concomitant]
     Active Substance: CALCIUM CARBONATE\SODIUM ALGINATE\SODIUM BICARBONATE
     Dosage: 5-10ML AFTER MEALS AND AT BEDTIME
     Dates: start: 20170428
  4. WARFARIN [Suspect]
     Active Substance: WARFARIN
     Indication: HAEMARTHROSIS
     Dosage: DOSE AS PER INTERNATIONAL NORMALIZED RATIO RESULT (YELLOW BOOK)
     Route: 048
     Dates: start: 20040526
  5. PANTOPRAZOLE [Concomitant]
     Active Substance: PANTOPRAZOLE
     Indication: DYSPEPSIA
     Dosage: 20 MILLIGRAM DAILY;
     Dates: start: 20161214
  6. WARFARIN [Suspect]
     Active Substance: WARFARIN
     Indication: HAEMARTHROSIS
     Dosage: DOSE AS PER INTERNATIONAL NORMALIZED RATIO RESULT (YELLOW BOOK)
     Route: 048
     Dates: start: 20040526, end: 20170726
  7. ATORVASTATIN [Concomitant]
     Active Substance: ATORVASTATIN
     Dosage: 10 MILLIGRAM DAILY;
     Dates: start: 20161214
  8. LETROZOLE. [Concomitant]
     Active Substance: LETROZOLE
     Indication: BREAST DISORDER
     Dosage: 2.5 MILLIGRAM DAILY;
     Dates: start: 20161214
  9. CALCICHEW [Concomitant]
     Active Substance: CALCIUM CARBONATE
     Indication: OSTEOPOROSIS
     Dosage: 1.5 GRAM DAILY;
     Dates: start: 20161214
  10. FUROSEMIDE. [Concomitant]
     Active Substance: FUROSEMIDE
     Indication: OEDEMA
     Dosage: 20 MILLIGRAM DAILY;
     Dates: start: 20170512
  11. HYPROMELLOSE [Concomitant]
     Active Substance: HYPROMELLOSES
     Indication: DRY EYE
     Dosage: 1 DROP EACH EYE FOUR TIMES A DAY WHEN REQUIRED
     Route: 050
     Dates: start: 20161214
  12. HYPROMELLOSE [Concomitant]
     Active Substance: HYPROMELLOSES
     Dosage: 1 DROP EACH EYE FOUR TIMES A DAY WHEN REQUIRED
     Route: 050
     Dates: start: 20161214

REACTIONS (2)
  - Aspiration [Not Recovered/Not Resolved]
  - Haemarthrosis [Fatal]

NARRATIVE: CASE EVENT DATE: 20170726
